FAERS Safety Report 5100657-6 (Version None)
Quarter: 2006Q3

REPORT INFORMATION
  Report Type: 
  Country: None (occurrence: None)
  Receive Date: 20060731
  Receipt Date: 20050831
  Transmission Date: 20061208
  Serious: Yes (Hospitalization)
  Sender: FDA-Public Use
  Company Number: 216274

PATIENT
  Age: 45 Year
  Sex: Male

DRUGS (4)
  1. RITUXAN [Suspect]
     Indication: HAIRY CELL LEUKAEMIA
     Dosage: 375 MG/M2
     Dates: start: 20050718
  2. DECADRON [Concomitant]
  3. BENADRYL [Concomitant]
  4. DILAUDID [Concomitant]

REACTIONS (3)
  - BACK PAIN [None]
  - CHILLS [None]
  - INFUSION RELATED REACTION [None]
